FAERS Safety Report 13541212 (Version 2)
Quarter: 2017Q2

REPORT INFORMATION
  Report Type: Report from Study
  Country: PL (occurrence: PL)
  Receive Date: 20170512
  Receipt Date: 20170628
  Transmission Date: 20170830
  Serious: Yes (Life-Threatening, Hospitalization)
  Sender: FDA-Public Use
  Company Number: PL-ASTRAZENECA-2017SE50680

PATIENT
  Age: 62 Year
  Sex: Male
  Weight: 76 kg

DRUGS (9)
  1. MEDI4736 [Suspect]
     Active Substance: DURVALUMAB
     Indication: HEAD AND NECK CANCER METASTATIC
     Route: 042
     Dates: start: 20170328, end: 20170328
  2. NACL [Concomitant]
     Active Substance: SODIUM CHLORIDE
     Dosage: 0.9 %
     Route: 065
     Dates: start: 20170503, end: 20170503
  3. FENTANYL. [Concomitant]
     Active Substance: FENTANYL
     Route: 065
     Dates: start: 20170503, end: 20170503
  4. PREGABALIN. [Concomitant]
     Active Substance: PREGABALIN
     Route: 065
     Dates: start: 201702
  5. GLUCOSE [Concomitant]
     Active Substance: DEXTROSE
     Route: 065
     Dates: start: 20170503, end: 20170505
  6. TRAMADOLI HYDROCHLORIDUM [Concomitant]
     Route: 065
     Dates: start: 201702
  7. MEDI4736 [Suspect]
     Active Substance: DURVALUMAB
     Indication: HEAD AND NECK CANCER METASTATIC
     Route: 042
     Dates: start: 20170411, end: 20170411
  8. MEDI4736 [Suspect]
     Active Substance: DURVALUMAB
     Indication: HEAD AND NECK CANCER METASTATIC
     Route: 042
     Dates: start: 20170425, end: 20170425
  9. DOXEPIN [Concomitant]
     Active Substance: DOXEPIN
     Route: 065
     Dates: start: 201702

REACTIONS (1)
  - Loss of consciousness [Recovered/Resolved]

NARRATIVE: CASE EVENT DATE: 20170509
